FAERS Safety Report 8962550 (Version 1)
Quarter: 2012Q4

REPORT INFORMATION
  Report Type: 
  Country: US (occurrence: US)
  Receive Date: 20121213
  Receipt Date: 20121213
  Transmission Date: 20130627
  Serious: Yes (Hospitalization)
  Sender: FDA-Public Use
  Company Number: US-CELGENEUS-163-21880-12110122

PATIENT
  Age: 86 Year
  Sex: Male
  Weight: 70.37 kg

DRUGS (15)
  1. REVLIMID [Suspect]
     Indication: MULTIPLE MYELOMA
     Route: 048
     Dates: start: 20110401, end: 20110824
  2. REVLIMID [Suspect]
     Dosage: 5 Milligram
     Route: 048
     Dates: start: 20111023
  3. REVLIMID [Suspect]
     Dosage: 5 Milligram
     Route: 048
     Dates: start: 20120214, end: 201209
  4. REVLIMID [Suspect]
     Route: 048
     Dates: start: 201209
  5. DEXAMETHASONE [Concomitant]
     Indication: MULTIPLE MYELOMA
     Route: 065
     Dates: start: 20110401, end: 20110824
  6. DEXAMETHASONE [Concomitant]
     Dosage: 20 Milligram
     Route: 065
     Dates: start: 20111023
  7. DEXAMETHASONE [Concomitant]
     Dosage: 12 Milligram
     Route: 065
     Dates: start: 20111218
  8. DEXAMETHASONE [Concomitant]
     Dosage: 8 Milligram
     Route: 065
     Dates: start: 2012
  9. SOTALOL [Concomitant]
     Indication: ATRIAL FIBRILLATION
     Dosage: 80 Milligram
     Route: 065
  10. SOTALOL [Concomitant]
     Dosage: 40 Milligram
     Route: 065
  11. FLOMAX [Concomitant]
     Indication: BENIGN PROSTATIC HYPERTROPHY
     Route: 065
  12. MAGNESIUM OXIDE [Concomitant]
     Indication: HYPOMAGNESEMIA
     Dosage: 800 Milligram
     Route: 065
  13. ASPIRIN [Concomitant]
     Indication: DRUG USE FOR UNKNOWN INDICATION
     Route: 065
  14. PLAVIX [Concomitant]
     Indication: DRUG USE FOR UNKNOWN INDICATION
     Route: 065
  15. PRADAXA [Concomitant]
     Indication: DRUG USE FOR UNKNOWN INDICATION
     Route: 065

REACTIONS (1)
  - Gastrointestinal angiodysplasia haemorrhagic [Unknown]
